FAERS Safety Report 25662470 (Version 3)
Quarter: 2025Q4

REPORT INFORMATION
  Report Type: Report from Study
  Country: CO (occurrence: CO)
  Receive Date: 20250810
  Receipt Date: 20251208
  Transmission Date: 20260117
  Serious: Yes (Other)
  Sender: JOHNSON AND JOHNSON
  Company Number: CO-JNJFOC-20250810446

PATIENT
  Age: 58 Year
  Sex: Male
  Weight: 54 kg

DRUGS (1)
  1. SIMPONI [Suspect]
     Active Substance: GOLIMUMAB
     Indication: Ankylosing spondylitis
     Dosage: LAST ADMINISTRATION DATE: 30-NOV-2024
     Route: 058
     Dates: start: 20230322

REACTIONS (4)
  - Anal abscess [Unknown]
  - Anal fistula [Unknown]
  - Pain [Unknown]
  - Product dose omission issue [Unknown]

NARRATIVE: CASE EVENT DATE: 20250701
